FAERS Safety Report 17037563 (Version 7)
Quarter: 2020Q2

REPORT INFORMATION
  Report Type: Report from Study
  Country: CO (occurrence: CO)
  Receive Date: 20191115
  Receipt Date: 20200422
  Transmission Date: 20200713
  Serious: Yes (Life-Threatening, Other)
  Sender: FDA-Public Use
  Company Number: NVSC2019CO009471

PATIENT
  Age: 6 Year
  Sex: Female
  Weight: 25 kg

DRUGS (5)
  1. REVOLADE [Suspect]
     Active Substance: ELTROMBOPAG
     Dosage: 75 MG, QD
     Route: 048
  2. REVOLADE [Suspect]
     Active Substance: ELTROMBOPAG
     Indication: IMMUNE THROMBOCYTOPENIA
     Dosage: 50 MG, QD
     Route: 048
     Dates: start: 20190712, end: 20191031
  3. PREDNISOLONE. [Concomitant]
     Active Substance: PREDNISOLONE
     Indication: PRODUCT USED FOR UNKNOWN INDICATION
     Dosage: 50 MG, Q12H (FOR 4 DAYS)
     Route: 065
  4. REVOLADE [Suspect]
     Active Substance: ELTROMBOPAG
     Dosage: 50 MG, QD
     Route: 048
     Dates: start: 20191113
  5. PREDNISOLONE. [Concomitant]
     Active Substance: PREDNISOLONE
     Dosage: 25 MG, Q12H (DURING 3 DAYS)
     Route: 065

REACTIONS (12)
  - Haemorrhage [Unknown]
  - Therapy non-responder [Unknown]
  - Malaise [Unknown]
  - Headache [Recovered/Resolved]
  - General physical health deterioration [Unknown]
  - Hypersensitivity [Unknown]
  - Transaminases increased [Unknown]
  - Platelet count decreased [Unknown]
  - Epistaxis [Unknown]
  - Discoloured vomit [Unknown]
  - Viral infection [Recovered/Resolved]
  - Platelet count increased [Unknown]

NARRATIVE: CASE EVENT DATE: 201907
